FAERS Safety Report 4603648-4 (Version None)
Quarter: 2005Q1

REPORT INFORMATION
  Report Type: 
  Country: None (occurrence: None)
  Receive Date: 20050308
  Receipt Date: 20050308
  Transmission Date: 20050727
  Serious: Yes (Other)
  Sender: FDA-Public Use
  Company Number: None

PATIENT
  Age: 45 Year
  Sex: Male
  Weight: 92.9874 kg

DRUGS (2)
  1. CELEXA [Suspect]
     Indication: DYSTHYMIC DISORDER
     Dosage: 40 MG 1 1/2 PO AM
     Route: 048
  2. CELEXA [Suspect]
     Indication: PANIC DISORDER
     Dosage: 40 MG 1 1/2 PO AM
     Route: 048

REACTIONS (5)
  - ANXIETY [None]
  - DEPRESSION [None]
  - DRUG INEFFECTIVE [None]
  - FATIGUE [None]
  - PHARMACEUTICAL PRODUCT COMPLAINT [None]
